FAERS Safety Report 20166112 (Version 2)
Quarter: 2022Q1

REPORT INFORMATION
  Report Type: Report from Study
  Country: FR (occurrence: FR)
  Receive Date: 20211209
  Receipt Date: 20220328
  Transmission Date: 20220423
  Serious: Yes (Hospitalization, Other)
  Sender: FDA-Public Use
  Company Number: FR-TAKEDA-2021TUS077965

PATIENT
  Age: 15 Year
  Sex: Male

DRUGS (2)
  1. IDURSULFASE [Suspect]
     Active Substance: IDURSULFASE
     Indication: Mucopolysaccharidosis II
     Dosage: 0.6 MILLIGRAM/KILOGRAM, 1/WEEK
     Route: 042
     Dates: start: 20100525
  2. IDURSULFASE [Suspect]
     Active Substance: IDURSULFASE
     Dosage: 0.48 MILLIGRAM/KILOGRAM
     Route: 042
     Dates: start: 20120927

REACTIONS (1)
  - Device related infection [Recovered/Resolved]

NARRATIVE: CASE EVENT DATE: 20211116
